FAERS Safety Report 25685954 (Version 2)
Quarter: 2025Q4

REPORT INFORMATION
  Report Type: Spontaneous
  Country: US (occurrence: US)
  Receive Date: 20250815
  Receipt Date: 20251103
  Transmission Date: 20260117
  Serious: Yes (Hospitalization, Other)
  Sender: NOVO NORDISK
  Company Number: US-NOVOPROD-1498223

PATIENT
  Age: 64 Year
  Sex: Male
  Weight: 86 kg

DRUGS (30)
  1. OZEMPIC [Suspect]
     Active Substance: SEMAGLUTIDE
     Indication: Type 2 diabetes mellitus
     Dosage: 0.25 MG, QW
     Dates: start: 20230309, end: 20230602
  2. OZEMPIC [Suspect]
     Active Substance: SEMAGLUTIDE
     Indication: Type 2 diabetes mellitus
     Dosage: 1 MG, QW
     Dates: start: 20230602, end: 20230819
  3. ALBUTEROL SULFATE [Concomitant]
     Active Substance: ALBUTEROL SULFATE
     Indication: Chronic obstructive pulmonary disease
     Dosage: UNK
     Dates: start: 20180101
  4. CYANOCOBALAMIN [Concomitant]
     Active Substance: CYANOCOBALAMIN
     Indication: Nerve injury
     Dosage: UNK
     Dates: start: 20180101
  5. CYCLOBENZAPRINE [Concomitant]
     Active Substance: CYCLOBENZAPRINE
     Indication: Muscle spasms
     Dosage: UNK
     Dates: start: 20180101
  6. DULOXETINE [Concomitant]
     Active Substance: DULOXETINE
     Indication: Nerve injury
     Dosage: UNK
     Dates: start: 20180101
  7. GABAPENTIN [Concomitant]
     Active Substance: GABAPENTIN
     Indication: Type 2 diabetes mellitus
     Dosage: UNK
     Dates: start: 20140101
  8. GABAPENTIN [Concomitant]
     Active Substance: GABAPENTIN
     Indication: Neuralgia
     Dosage: UNK
     Dates: start: 20180101
  9. GABAPENTIN [Concomitant]
     Active Substance: GABAPENTIN
     Indication: Neuropathy peripheral
  10. GLIMEPIRIDE [Concomitant]
     Active Substance: GLIMEPIRIDE
     Indication: Type 2 diabetes mellitus
     Dosage: UNK
     Dates: start: 20180101
  11. LORATADINE [Concomitant]
     Active Substance: LORATADINE
     Indication: Hypersensitivity
     Dosage: UNK
     Dates: start: 20180101
  12. LOSARTAN [Concomitant]
     Active Substance: LOSARTAN
     Indication: Hypertension
     Dosage: UNK
     Dates: start: 20180101
  13. METFORMIN [Concomitant]
     Active Substance: METFORMIN HYDROCHLORIDE
     Indication: Type 2 diabetes mellitus
     Dosage: UNK
     Dates: start: 20140101
  14. METFORMIN [Concomitant]
     Active Substance: METFORMIN HYDROCHLORIDE
     Dosage: UNK
     Dates: start: 20180101
  15. METOPROLOL SUCCINATE [Concomitant]
     Active Substance: METOPROLOL SUCCINATE
     Indication: Atrial fibrillation
     Dosage: UNK
     Dates: start: 20180101
  16. PANTOPRAZOLE [Concomitant]
     Active Substance: PANTOPRAZOLE
     Indication: Gastrooesophageal reflux disease
     Dosage: UNK
     Dates: start: 20180101
  17. PRAVASTATIN [Concomitant]
     Active Substance: PRAVASTATIN
     Indication: Blood cholesterol increased
     Dosage: UNK
     Dates: start: 20180101
  18. TAMSULOSIN [Concomitant]
     Active Substance: TAMSULOSIN
     Indication: Prostatomegaly
     Dosage: UNK
     Dates: start: 20180101
  19. TRELEGY ELLIPTA [Concomitant]
     Active Substance: FLUTICASONE FUROATE\UMECLIDINIUM BROMIDE\VILANTEROL TRIFENATATE
     Indication: Chronic obstructive pulmonary disease
     Dosage: UNK
     Dates: start: 20180101
  20. AMLODIPINE [Concomitant]
     Active Substance: AMLODIPINE BESYLATE
     Indication: Hypertension
     Dosage: UNK
     Dates: start: 20180101
  21. APIXABAN [Concomitant]
     Active Substance: APIXABAN
     Indication: Hypertension
     Dosage: UNK
     Dates: start: 20180101
  22. RIVAROXABAN [Concomitant]
     Active Substance: RIVAROXABAN
     Indication: Atrial fibrillation
     Dosage: UNK
     Dates: start: 20180101
  23. SPIRONOLACTONE [Concomitant]
     Active Substance: SPIRONOLACTONE
     Indication: Cardiac discomfort
     Dosage: UNK
     Dates: start: 20180101
  24. SPIRONOLACTONE [Concomitant]
     Active Substance: SPIRONOLACTONE
     Indication: Cardiomegaly
  25. GLYBURIDE [Concomitant]
     Active Substance: GLYBURIDE
     Indication: Type 2 diabetes mellitus
     Dosage: UNK
     Dates: start: 20180101
  26. OXYCODONE [Concomitant]
     Active Substance: OXYCODONE
     Indication: Back pain
     Dosage: UNK
     Dates: start: 20180101
  27. OXYCODONE [Concomitant]
     Active Substance: OXYCODONE
     Indication: Neuralgia
  28. ASPIRIN [Concomitant]
     Active Substance: ASPIRIN
     Indication: Blood cholesterol increased
     Dosage: UNK
     Dates: start: 20230101, end: 20230731
  29. TRULICITY [Concomitant]
     Active Substance: DULAGLUTIDE
     Indication: Type 2 diabetes mellitus
     Dosage: UNK
     Dates: start: 20150101
  30. AMLODIPINE\HYDROCHLOROTHIAZIDE\OLMESARTAN [Concomitant]
     Active Substance: AMLODIPINE\HYDROCHLOROTHIAZIDE\OLMESARTAN
     Indication: Hypertension
     Dosage: UNK
     Dates: start: 20180101

REACTIONS (4)
  - Ileus [Not Recovered/Not Resolved]
  - Impaired gastric emptying [Not Recovered/Not Resolved]
  - Dyspepsia [Not Recovered/Not Resolved]
  - Off label use [Unknown]

NARRATIVE: CASE EVENT DATE: 20230101
